FAERS Safety Report 16176954 (Version 3)
Quarter: 2019Q2

REPORT INFORMATION
  Report Type: Report from Study
  Country: AR (occurrence: AR)
  Receive Date: 20190409
  Receipt Date: 20190427
  Transmission Date: 20190711
  Serious: Yes (Death, Hospitalization, Other)
  Sender: FDA-Public Use
  Company Number: AR-AMGEN-ARGSL2019019313

PATIENT
  Age: 38 Year
  Sex: Male

DRUGS (1)
  1. VECTIBIX [Suspect]
     Active Substance: PANITUMUMAB
     Indication: COLORECTAL CANCER METASTATIC
     Dosage: UNK, Q2WK
     Route: 065
     Dates: start: 20190130

REACTIONS (11)
  - Urinary tract infection [Unknown]
  - Gait disturbance [Not Recovered/Not Resolved]
  - Haemorrhage [Unknown]
  - Throat tightness [Not Recovered/Not Resolved]
  - Hospitalisation [Unknown]
  - Pain in extremity [Not Recovered/Not Resolved]
  - Anaemia [Unknown]
  - Rash [Not Recovered/Not Resolved]
  - Vomiting [Not Recovered/Not Resolved]
  - Gastrointestinal stoma complication [Not Recovered/Not Resolved]
  - Death [Fatal]

NARRATIVE: CASE EVENT DATE: 2019
